FAERS Safety Report 20898727 (Version 2)
Quarter: 2022Q2

REPORT INFORMATION
  Report Type: Spontaneous
  Country: US (occurrence: US)
  Receive Date: 20220601
  Receipt Date: 20220614
  Transmission Date: 20220720
  Serious: Yes (Other)
  Sender: FDA-Public Use
  Company Number: US-Accord-264984

PATIENT
  Age: 32 Month
  Sex: Female

DRUGS (1)
  1. TACROLIMUS [Suspect]
     Active Substance: TACROLIMUS
     Indication: Nephrotic syndrome
     Dosage: LOW DOSE OF TACROLIMUS (7.4 NG/ML), INCREASED DOSE
     Dates: start: 20190820, end: 202011

REACTIONS (2)
  - Dystonia [Unknown]
  - Off label use [Unknown]

NARRATIVE: CASE EVENT DATE: 20201126
